FAERS Safety Report 7736587-0 (Version None)
Quarter: 2011Q3

REPORT INFORMATION
  Report Type: 
  Country: None (occurrence: None)
  Receive Date: 20110908
  Receipt Date: 20110404
  Transmission Date: 20111222
  Serious: No
  Sender: FDA-Public Use
  Company Number: US-BAYER-2011-038685

PATIENT
  Sex: Female

DRUGS (1)
  1. MIRENA [Suspect]
     Dosage: UNK
     Dates: start: 20110331, end: 20110331

REACTIONS (3)
  - ABDOMINAL PAIN LOWER [None]
  - DEVICE DISLOCATION [None]
  - PAIN [None]
